FAERS Safety Report 10559554 (Version 1)
Quarter: 2014Q4

REPORT INFORMATION
  Report Type: Spontaneous
  Country: US (occurrence: US)
  Receive Date: 20141103
  Receipt Date: 20141103
  Transmission Date: 20150529
  Serious: No
  Sender: FDA-Public Use
  Company Number: US-PFIZER INC-2014298588

PATIENT
  Sex: Female

DRUGS (1)
  1. ADVIL MIGRAINE [Suspect]
     Active Substance: IBUPROFEN
     Dosage: TWO CAPSULES, TWICE A DAY (2 AT 9 A.M AND 2 AT 4 P.M)

REACTIONS (2)
  - Intentional overdose [Unknown]
  - Headache [Unknown]
